FAERS Safety Report 8550794-9 (Version None)
Quarter: 2012Q3

REPORT INFORMATION
  Report Type: 
  Country: None (occurrence: None)
  Receive Date: 20120730
  Receipt Date: 20110729
  Transmission Date: 20120928
  Serious: No
  Sender: FDA-Public Use
  Company Number: US-ALLERGAN-1110305US

PATIENT
  Sex: Female

DRUGS (1)
  1. LATISSE [Suspect]
     Indication: HYPOTRICHOSIS
     Dosage: UNK
     Dates: start: 20110301

REACTIONS (1)
  - OCULAR HYPERAEMIA [None]
